FAERS Safety Report 9119552 (Version 1)
Quarter: 2013Q1

REPORT INFORMATION
  Report Type: Spontaneous
  Country: US (occurrence: None)
  Receive Date: 20130221
  Receipt Date: 20130221
  Transmission Date: 20140127
  Serious: No
  Sender: FDA-Public Use
  Company Number: None

PATIENT
  Sex: 0

DRUGS (2)
  1. ETOMIDATE [Suspect]
     Dosage: INJECTABLE INJECTION 20 MG/10ML SINGLE DOSE VIAL
     Route: 042
  2. PROTONIX [Suspect]
     Dosage: INJECTABLE INJECTION 40 MG
     Route: 042

REACTIONS (2)
  - Medication error [None]
  - Circumstance or information capable of leading to medication error [None]
